FAERS Safety Report 14842028 (Version 4)
Quarter: 2019Q3

REPORT INFORMATION
  Report Type: Spontaneous
  Country: US (occurrence: US)
  Receive Date: 20180503
  Receipt Date: 20190822
  Transmission Date: 20191004
  Serious: Yes (Hospitalization, Other)
  Sender: FDA-Public Use
  Company Number: US-PFIZER INC-2018182239

PATIENT
  Age: 47 Year
  Sex: Female

DRUGS (9)
  1. NEXIUM [Suspect]
     Active Substance: ESOMEPRAZOLE MAGNESIUM
     Dosage: UNK, AS DIRECTED
     Route: 048
     Dates: start: 2008, end: 2016
  2. PREVACID [Suspect]
     Active Substance: LANSOPRAZOLE
     Dosage: UNK, AS DIRECTED
     Route: 048
     Dates: start: 2008, end: 2016
  3. PROTONIX [Suspect]
     Active Substance: PANTOPRAZOLE SODIUM
     Dosage: UNK, AS DIRECTED
     Route: 048
     Dates: start: 2008, end: 2016
  4. PRILOSEC OTC [Suspect]
     Active Substance: OMEPRAZOLE MAGNESIUM
     Dosage: UNK, AS DIRECTED
     Route: 048
     Dates: start: 2008, end: 2016
  5. DEXILANT [Suspect]
     Active Substance: DEXLANSOPRAZOLE
     Dosage: UNK, AS DIRECTED
     Route: 048
     Dates: start: 2008, end: 2016
  6. NEXIUM 24HR [Suspect]
     Active Substance: ESOMEPRAZOLE MAGNESIUM
     Dosage: UNK, AS DIRECTED
     Route: 048
     Dates: end: 2016
  7. PREVACID 24 HR [Suspect]
     Active Substance: LANSOPRAZOLE
     Dosage: UNK, AS DIRECTED
     Route: 048
     Dates: start: 2008, end: 2016
  8. PROTONIX [Suspect]
     Active Substance: PANTOPRAZOLE SODIUM
     Dosage: 40 MG, UNK
     Dates: start: 2010, end: 2011
  9. PRILOSEC [Suspect]
     Active Substance: OMEPRAZOLE MAGNESIUM
     Dosage: UNK, AS DIRECTED
     Route: 048
     Dates: start: 2008, end: 2016

REACTIONS (2)
  - Renal failure [Unknown]
  - End stage renal disease [Unknown]

NARRATIVE: CASE EVENT DATE: 2009
